FAERS Safety Report 6012770-X (Version None)
Quarter: 2008Q4

REPORT INFORMATION
  Report Type: 
  Country: None (occurrence: None)
  Receive Date: 20081219
  Receipt Date: 20081212
  Transmission Date: 20090506
  Serious: Yes (Death)
  Sender: FDA-Public Use
  Company Number: GB-RANBAXY-2008RR-19951

PATIENT
  Age: 82 Year
  Sex: Female

DRUGS (2)
  1. CODEINE SUL TAB [Suspect]
     Indication: PAIN
     Route: 065
  2. DICLOFENAC SODIUM [Suspect]
     Indication: PAIN
     Route: 065

REACTIONS (2)
  - DIVERTICULAR PERFORATION [None]
  - PERITONITIS [None]
